FAERS Safety Report 21350791 (Version 1)
Quarter: 2022Q3

REPORT INFORMATION
  Report Type: Spontaneous
  Country: US (occurrence: None)
  Receive Date: 20220919
  Receipt Date: 20220919
  Transmission Date: 20221027
  Serious: Yes (Other)
  Sender: FDA-Public Use
  Company Number: None

PATIENT
  Age: 45 Year
  Sex: Female
  Weight: 81 kg

DRUGS (10)
  1. CAPLYTA [Suspect]
     Active Substance: LUMATEPERONE
     Indication: Depression
     Dosage: OTHER QUANTITY : 1 CAPSULE(S);?FREQUENCY : AT BEDTIME;?
     Route: 048
     Dates: start: 20220917, end: 20220919
  2. LAMICTAL [Concomitant]
     Active Substance: LAMOTRIGINE
  3. CELEXA [Concomitant]
     Active Substance: CITALOPRAM HYDROBROMIDE
  4. KLONOPIN [Concomitant]
     Active Substance: CLONAZEPAM
  5. TOPAMAX [Concomitant]
     Active Substance: TOPIRAMATE
  6. IMITREX [Concomitant]
     Active Substance: SUMATRIPTAN SUCCINATE
  7. PANTOPRAZOLE [Concomitant]
     Active Substance: PANTOPRAZOLE
  8. GASTRIC BYPASS VITAMINS [Concomitant]
  9. FLONASE [Concomitant]
     Active Substance: FLUTICASONE PROPIONATE
  10. CLARITIN [Concomitant]
     Active Substance: LORATADINE

REACTIONS (1)
  - Migraine [None]

NARRATIVE: CASE EVENT DATE: 20220917
